FAERS Safety Report 10884004 (Version 2)
Quarter: 2015Q1

REPORT INFORMATION
  Report Type: Report from Study
  Country: US (occurrence: US)
  Receive Date: 20150304
  Receipt Date: 20150306
  Transmission Date: 20150721
  Serious: Yes (Death, Other)
  Sender: FDA-Public Use
  Company Number: US-ROCHE-1140284

PATIENT
  Age: 87 Year
  Sex: Male
  Weight: 67 kg

DRUGS (8)
  1. CISPLATIN. [Suspect]
     Active Substance: CISPLATIN
     Indication: SMALL CELL LUNG CANCER EXTENSIVE STAGE
     Route: 042
     Dates: start: 20110209
  2. CISPLATIN. [Suspect]
     Active Substance: CISPLATIN
     Dosage: CYCLE 4, DAY 1
     Route: 042
  3. ETOPOSIDE. [Suspect]
     Active Substance: ETOPOSIDE
     Dosage: CYCLE 4, DAY 3
     Route: 042
     Dates: start: 20110211
  4. VISMODEGIB [Suspect]
     Active Substance: VISMODEGIB
     Indication: SMALL CELL LUNG CANCER EXTENSIVE STAGE
     Dosage: LAST DOSE PRIOR TO SAE: 1050 MG; DATE: 07/APR/2011?LAST DOSE PRIOR TO SAE: 3150 MG; DATE: 01/MAR/201
     Route: 048
     Dates: start: 20101208
  5. VISMODEGIB [Suspect]
     Active Substance: VISMODEGIB
     Dosage: DAY 1 OF 21
     Route: 048
  6. ETOPOSIDE. [Suspect]
     Active Substance: ETOPOSIDE
     Dosage: CYCLE 4, DAY 1 (DAY 1 OF 21)
     Route: 042
     Dates: start: 20110209
  7. ETOPOSIDE. [Suspect]
     Active Substance: ETOPOSIDE
     Indication: SMALL CELL LUNG CANCER EXTENSIVE STAGE
     Dosage: DAILY DOSE: 100MG/M2/DAY
     Route: 042
     Dates: start: 20110209
  8. ETOPOSIDE. [Suspect]
     Active Substance: ETOPOSIDE
     Dosage: CYCLE 4, DAY 2
     Route: 042
     Dates: start: 20110210

REACTIONS (3)
  - Disease progression [Fatal]
  - Aspartate aminotransferase increased [Unknown]
  - Lymphocyte count decreased [Recovered/Resolved]

NARRATIVE: CASE EVENT DATE: 20110302
